FAERS Safety Report 4986847-1 (Version None)
Quarter: 2006Q2

REPORT INFORMATION
  Report Type: 
  Country: None (occurrence: None)
  Receive Date: 20060428
  Receipt Date: 20060407
  Transmission Date: 20061013
  Serious: Yes (Death)
  Sender: FDA-Public Use
  Company Number: US-ABBOTT-06P-163-0330163-00

PATIENT
  Age: 64 Year
  Sex: Female

DRUGS (1)
  1. HUMIRA [Suspect]
     Indication: RHEUMATOID ARTHRITIS
     Route: 058
     Dates: end: 20060105

REACTIONS (6)
  - CARDIAC DISORDER [None]
  - DEPRESSION [None]
  - GASTRIC DISORDER [None]
  - LABILE BLOOD PRESSURE [None]
  - MOOD SWINGS [None]
  - RESPIRATORY FAILURE [None]
